FAERS Safety Report 23967612 (Version 1)
Quarter: 2024Q2

REPORT INFORMATION
  Report Type: Spontaneous
  Country: US (occurrence: US)
  Receive Date: 20240612
  Receipt Date: 20240612
  Transmission Date: 20240716
  Serious: No
  Sender: FDA-Public Use
  Company Number: US-SA-SAC20240611000600

PATIENT
  Sex: Female
  Weight: 17.8 kg

DRUGS (7)
  1. DUPIXENT [Suspect]
     Active Substance: DUPILUMAB
     Indication: Dermatitis atopic
     Dosage: 300 MG, Q4W
     Route: 058
  2. TACROLIMUS [Concomitant]
     Active Substance: TACROLIMUS
  3. PROTOPIC [Concomitant]
     Active Substance: TACROLIMUS
  4. HYDROCORTISONE [Concomitant]
     Active Substance: HYDROCORTISONE\HYDROCORTISONE ACETATE
  5. TRIAMCINOLONE ACETONIDE [Concomitant]
     Active Substance: TRIAMCINOLONE ACETONIDE
  6. CEPHALEXIN [Concomitant]
     Active Substance: CEPHALEXIN
  7. OFLOXACIN [Concomitant]
     Active Substance: OFLOXACIN

REACTIONS (1)
  - Infection [Unknown]
